FAERS Safety Report 9424657 (Version 1)
Quarter: 2013Q3

REPORT INFORMATION
  Report Type: Report from Study
  Country: AR (occurrence: AR)
  Receive Date: 20130729
  Receipt Date: 20130729
  Transmission Date: 20140515
  Serious: Yes (Other)
  Sender: FDA-Public Use
  Company Number: AR-ABBOTT-13P-007-1083718-00

PATIENT
  Age: 52 Year
  Sex: Female

DRUGS (5)
  1. HUMIRA [Suspect]
     Indication: RHEUMATOID ARTHRITIS
     Route: 058
     Dates: start: 20080525
  2. OXAGESIC [Concomitant]
     Indication: PRODUCT USED FOR UNKNOWN INDICATION
  3. ARTRAIT [Concomitant]
     Indication: PRODUCT USED FOR UNKNOWN INDICATION
  4. TRANQUINAL [Concomitant]
     Indication: PRODUCT USED FOR UNKNOWN INDICATION
  5. GASTRIC PROTECTOR [Concomitant]
     Indication: PRODUCT USED FOR UNKNOWN INDICATION

REACTIONS (1)
  - Cartilage injury [Recovering/Resolving]
